FAERS Safety Report 5870289-0 (Version None)
Quarter: 2008Q3

REPORT INFORMATION
  Report Type: 
  Country: None (occurrence: None)
  Receive Date: 20080904
  Receipt Date: 20070822
  Transmission Date: 20090109
  Serious: No
  Sender: FDA-Public Use
  Company Number: US-BRISTOL-MYERS SQUIBB COMPANY-13885249

PATIENT
  Sex: Male
  Weight: 77 kg

DRUGS (7)
  1. DEFINITY [Suspect]
     Indication: ECHOCARDIOGRAM
     Dosage: 1.2 ML IN 9.7 CC OF NORMAL SALINE.
     Route: 042
     Dates: start: 20070822, end: 20070822
  2. ZOCOR [Concomitant]
  3. METFORMIN HCL [Concomitant]
  4. TOPROL-XL [Concomitant]
  5. HYTRIN [Concomitant]
  6. AVAPRO [Concomitant]
  7. ASPIRIN [Concomitant]

REACTIONS (1)
  - BACK PAIN [None]
